FAERS Safety Report 12749111 (Version 2)
Quarter: 2016Q4

REPORT INFORMATION
  Report Type: Spontaneous
  Country: US (occurrence: US)
  Receive Date: 20160915
  Receipt Date: 20161223
  Transmission Date: 20170207
  Serious: Yes (Hospitalization)
  Sender: FDA-Public Use
  Company Number: US-ASTELLAS-2016US012272

PATIENT
  Age: 79 Year
  Sex: Male

DRUGS (1)
  1. XTANDI [Suspect]
     Active Substance: ENZALUTAMIDE
     Indication: PROSTATE CANCER
     Route: 048
     Dates: start: 201603

REACTIONS (16)
  - Hyperchlorhydria [Not Recovered/Not Resolved]
  - Arthralgia [Not Recovered/Not Resolved]
  - Motion sickness [Unknown]
  - Alopecia [Unknown]
  - Urethral intrinsic sphincter deficiency [Unknown]
  - Insomnia [Unknown]
  - Muscle spasms [Unknown]
  - Anxiety [Unknown]
  - Muscle atrophy [Unknown]
  - Staphylococcal infection [Unknown]
  - Constipation [Not Recovered/Not Resolved]
  - Gait disturbance [Unknown]
  - Fatigue [Not Recovered/Not Resolved]
  - Dysgeusia [Unknown]
  - Urinary tract disorder [Unknown]
  - Dyspnoea [Not Recovered/Not Resolved]

NARRATIVE: CASE EVENT DATE: 201603
